FAERS Safety Report 12801495 (Version 1)
Quarter: 2016Q4

REPORT INFORMATION
  Report Type: Spontaneous
  Country: US (occurrence: US)
  Receive Date: 20161003
  Receipt Date: 20161003
  Transmission Date: 20170207
  Serious: No
  Sender: FDA-Public Use
  Company Number: US-TEVA-698051USA

PATIENT
  Age: 52 Year
  Sex: Male

DRUGS (11)
  1. CLONAZEPAM. [Concomitant]
     Active Substance: CLONAZEPAM
  2. CENTRUM [Concomitant]
     Active Substance: VITAMINS
  3. COPAXONE [Suspect]
     Active Substance: GLATIRAMER ACETATE
     Indication: MULTIPLE SCLEROSIS
     Route: 058
     Dates: start: 20150316
  4. MELATONIN [Concomitant]
     Active Substance: MELATONIN
  5. PAXIL [Concomitant]
     Active Substance: PAROXETINE HYDROCHLORIDE
  6. VITAMIN E [Concomitant]
     Active Substance: .ALPHA.-TOCOPHEROL
  7. FINASTERIDE. [Concomitant]
     Active Substance: FINASTERIDE
  8. FISH OIL [Concomitant]
     Active Substance: FISH OIL
  9. VITAMIN C [Concomitant]
     Active Substance: ASCORBIC ACID
  10. SUPER B COMPLEX [Concomitant]
     Active Substance: CYANOCOBALAMIN\DEXPANTHENOL\NIACINAMIDE\PYRIDOXINE HYDROCHLORIDE\RIBOFLAVIN 5^-PHOSPHATE SODIUM\THIAMINE HYDROCHLORIDE\VITAMIN B COMPLEX
  11. AMPYRA [Suspect]
     Active Substance: DALFAMPRIDINE
     Indication: MULTIPLE SCLEROSIS
     Dosage: 20 MILLIGRAM DAILY;
     Route: 048
     Dates: start: 20150429

REACTIONS (1)
  - Fall [Unknown]

NARRATIVE: CASE EVENT DATE: 201608
